FAERS Safety Report 6433395-8 (Version None)
Quarter: 2009Q4

REPORT INFORMATION
  Report Type: 
  Country: None (occurrence: None)
  Receive Date: 20091106
  Receipt Date: 20091106
  Transmission Date: 20100525
  Serious: Yes (Other)
  Sender: FDA-Public Use
  Company Number: None

PATIENT
  Age: 40 Year
  Sex: Female
  Weight: 57.6068 kg

DRUGS (1)
  1. TIGECYCLINE [Suspect]
     Indication: STAPHYLOCOCCAL OSTEOMYELITIS
     Dosage: 50MG 12 HR IV
     Route: 042
     Dates: start: 20090903, end: 20090925

REACTIONS (2)
  - BLOOD UREA INCREASED [None]
  - PLATELET COUNT INCREASED [None]
